FAERS Safety Report 9507636 (Version 1)
Quarter: 2013Q3

REPORT INFORMATION
  Report Type: Spontaneous
  Country: US (occurrence: None)
  Receive Date: 20130906
  Receipt Date: 20130906
  Transmission Date: 20140515
  Serious: No
  Sender: FDA-Public Use
  Company Number: None

PATIENT
  Age: 48 Year
  Sex: Male
  Weight: 90.72 kg

DRUGS (1)
  1. CHANTIX PFIZER [Suspect]
     Indication: SMOKING CESSATION THERAPY
     Dosage: 1  TWICE DAILY  TAKEN BY MOUTH
     Route: 048
     Dates: start: 20130708, end: 20130904

REACTIONS (3)
  - Fatigue [None]
  - Pain [None]
  - Mania [None]
